FAERS Safety Report 7561344-8 (Version None)
Quarter: 2011Q2

REPORT INFORMATION
  Report Type: 
  Country: None (occurrence: None)
  Receive Date: 20110621
  Receipt Date: 20100719
  Transmission Date: 20111010
  Serious: No
  Sender: FDA-Public Use
  Company Number: US-ASTRAZENECA-2010SE33531

PATIENT
  Age: 6 Year
  Sex: Male

DRUGS (2)
  1. ALBUTEROL SULFATE AUTOHALER [Concomitant]
  2. PULMICORT [Suspect]
     Indication: ASTHMA
     Route: 055

REACTIONS (2)
  - ASTHMA [None]
  - DRUG INEFFECTIVE [None]
